FAERS Safety Report 7095220-4 (Version None)
Quarter: 2010Q4

REPORT INFORMATION
  Report Type: 
  Country: None (occurrence: None)
  Receive Date: 20101111
  Receipt Date: 20101101
  Transmission Date: 20110411
  Serious: Yes (Other)
  Sender: FDA-Public Use
  Company Number: DE-JNJFOC-20101100645

PATIENT
  Age: 34 Year
  Sex: Male

DRUGS (3)
  1. RISPERDAL CONSTA [Suspect]
     Indication: POST-TRAUMATIC STRESS DISORDER
     Route: 030
  2. RISPERDAL CONSTA [Suspect]
     Indication: OBSESSIVE-COMPULSIVE DISORDER
     Route: 030
  3. PROTON PUMP INHIBITORS [Concomitant]
     Indication: GASTROOESOPHAGEAL REFLUX DISEASE
     Route: 065

REACTIONS (1)
  - RESPIRATORY DISORDER [None]
